FAERS Safety Report 7121670-3 (Version None)
Quarter: 2010Q4

REPORT INFORMATION
  Report Type: 
  Country: None (occurrence: None)
  Receive Date: 20101124
  Receipt Date: 20101117
  Transmission Date: 20110411
  Serious: Yes (Hospitalization, Other)
  Sender: FDA-Public Use
  Company Number: US-PFIZER INC-2010143847

PATIENT
  Sex: Female

DRUGS (6)
  1. DILANTIN [Suspect]
     Indication: CONVULSION
     Dosage: 100 MG, FOUR CAPSULES PER DAY
     Route: 048
  2. DILANTIN [Suspect]
     Dosage: 200 MG, 2X/DAY
  3. SOLU-MEDROL [Concomitant]
     Dosage: 60 MG, EVERY SIX HOURS
  4. ATARAX [Concomitant]
     Dosage: 25 MG, EVERY SIX HOURS
     Route: 048
  5. HYDROCORTISONE ACETATE [Concomitant]
     Dosage: 2.5 %, 2X/DAY
  6. DEPAKOTE [Concomitant]

REACTIONS (1)
  - STEVENS-JOHNSON SYNDROME [None]
